FAERS Safety Report 5975848-2 (Version None)
Quarter: 2008Q4

REPORT INFORMATION
  Report Type: 
  Country: None (occurrence: None)
  Receive Date: 20081202
  Receipt Date: 20081124
  Transmission Date: 20090506
  Serious: Yes (Hospitalization)
  Sender: FDA-Public Use
  Company Number: A0756583A

PATIENT
  Age: 67 Year
  Sex: Male

DRUGS (16)
  1. ADVAIR HFA [Suspect]
     Indication: CHRONIC OBSTRUCTIVE PULMONARY DISEASE
     Dosage: 1PUFF TWICE PER DAY
     Route: 055
  2. ALBUTEROL [Suspect]
     Dosage: 2PUFF FOUR TIMES PER DAY
     Route: 055
  3. OXYGEN [Concomitant]
  4. ALPRAZOLAM [Concomitant]
     Dosage: .25MG AT NIGHT
     Route: 048
  5. ASPIRIN [Concomitant]
     Dosage: 81MG IN THE MORNING
     Route: 048
  6. BUPROPION HCL [Concomitant]
     Dosage: 150MG TWICE PER DAY
     Route: 048
  7. CARVEDILOL [Concomitant]
     Dosage: 3.125MG TWICE PER DAY
     Route: 048
  8. CLOPIDOGREL [Concomitant]
     Dosage: 75MG IN THE MORNING
     Route: 048
  9. GABAPENTIN [Concomitant]
     Dosage: 300MG TWICE PER DAY
     Route: 048
  10. ACETAMINOPHEN AND HYDROCODONE BITARTRATE [Concomitant]
     Dosage: 1TAB AS REQUIRED
     Route: 048
  11. ISOSORBIDE [Concomitant]
     Dosage: 30MG IN THE MORNING
     Route: 048
  12. MORPHINE SULFATE [Concomitant]
     Dosage: 15MG AS REQUIRED
     Route: 048
  13. NITROTAB [Concomitant]
     Indication: CHEST PAIN
     Dosage: .4MG AS REQUIRED
     Route: 048
  14. RANEXA [Concomitant]
     Dosage: 500MG TWICE PER DAY
     Route: 048
  15. SPIRONOLACTONE [Concomitant]
     Dosage: 25MG PER DAY
     Route: 048
  16. ZOCOR [Concomitant]
     Dosage: 40MG AT NIGHT
     Route: 048

REACTIONS (6)
  - ARTERIAL OCCLUSIVE DISEASE [None]
  - ATRIOVENTRICULAR BLOCK [None]
  - CARDIAC DISORDER [None]
  - CORONARY ARTERY BYPASS [None]
  - PRODUCT QUALITY ISSUE [None]
  - STENT PLACEMENT [None]
